FAERS Safety Report 19983751 (Version 7)
Quarter: 2022Q2

REPORT INFORMATION
  Report Type: Report from Study
  Country: US (occurrence: US)
  Receive Date: 20211021
  Receipt Date: 20220601
  Transmission Date: 20220720
  Serious: Yes (Other)
  Sender: FDA-Public Use
  Company Number: US-MALLINCKRODT-T202004623

PATIENT
  Sex: Female

DRUGS (2)
  1. CORTICOTROPIN [Suspect]
     Active Substance: CORTICOTROPIN
     Indication: Pulmonary sarcoidosis
     Dosage: UNK
     Route: 065
  2. CEFDINIR [Concomitant]
     Active Substance: CEFDINIR
     Indication: Streptococcal infection
     Dosage: UNK
     Route: 065

REACTIONS (18)
  - Diabetes mellitus [Not Recovered/Not Resolved]
  - Sarcoidosis [Recovering/Resolving]
  - Condition aggravated [Recovering/Resolving]
  - COVID-19 [Recovered/Resolved]
  - Cardiac sarcoidosis [Unknown]
  - Osteoarthritis [Unknown]
  - Nodule [Recovering/Resolving]
  - Ear pain [Unknown]
  - Pharyngeal swelling [Unknown]
  - Sinusitis [Unknown]
  - Streptococcal infection [Not Recovered/Not Resolved]
  - Infected bite [Unknown]
  - Oral fungal infection [Not Recovered/Not Resolved]
  - Vulvovaginal mycotic infection [Not Recovered/Not Resolved]
  - Injection site pruritus [Not Recovered/Not Resolved]
  - Injection site erythema [Not Recovered/Not Resolved]
  - Therapeutic response shortened [Not Recovered/Not Resolved]
  - Product storage error [Unknown]

NARRATIVE: CASE EVENT DATE: 20200101
